FAERS Safety Report 19163600 (Version 1)
Quarter: 2021Q2

REPORT INFORMATION
  Report Type: Spontaneous
  Country: US (occurrence: US)
  Receive Date: 20210420
  Receipt Date: 20210420
  Transmission Date: 20210717
  Serious: No
  Sender: FDA-Public Use
  Company Number: None

PATIENT
  Age: 66 Year
  Sex: Female
  Weight: 73.35 kg

DRUGS (9)
  1. EZETIMBE?SIMVASTATIN [Concomitant]
  2. METFORMIN HYDROCHLORIDE. [Concomitant]
     Active Substance: METFORMIN HYDROCHLORIDE
  3. FLUTICASONE PROP [Concomitant]
     Active Substance: FLUTICASONE PROPIONATE
  4. ERGOCALCIFEROL. [Concomitant]
     Active Substance: ERGOCALCIFEROL
  5. PAROXETINE HCL [Concomitant]
     Active Substance: PAROXETINE HYDROCHLORIDE
  6. CALCIUM WITH VIT D [Concomitant]
  7. ZADITOR [Concomitant]
     Active Substance: KETOTIFEN FUMARATE
  8. TERBINAFINE HCL 250 MG TABLET (OBLONG WHITE B 526) [Suspect]
     Active Substance: TERBINAFINE HYDROCHLORIDE
     Indication: FUNGAL SKIN INFECTION
     Dosage: ?          QUANTITY:1 TABLET(S);?
     Route: 048
  9. MULTI?VITAMIN FOR WOMEN 55+ [Concomitant]

REACTIONS (2)
  - Gait inability [None]
  - Arthralgia [None]

NARRATIVE: CASE EVENT DATE: 20201206
